FAERS Safety Report 8116849-8 (Version None)
Quarter: 2012Q1

REPORT INFORMATION
  Report Type: 
  Country: None (occurrence: None)
  Receive Date: 20120206
  Receipt Date: 20120201
  Transmission Date: 20120608
  Serious: Yes (Death)
  Sender: FDA-Public Use
  Company Number: PHFR2012GB000966

PATIENT
  Age: 45 Year
  Sex: Female

DRUGS (1)
  1. EXJADE [Suspect]
     Indication: PYRUVATE KINASE DEFICIENCY ANAEMIA

REACTIONS (1)
  - COMPLETED SUICIDE [None]
